FAERS Safety Report 7123673-1 (Version None)
Quarter: 2010Q4

REPORT INFORMATION
  Report Type: 
  Country: None (occurrence: None)
  Receive Date: 20101125
  Receipt Date: 20101110
  Transmission Date: 20110411
  Serious: Yes (Hospitalization)
  Sender: FDA-Public Use
  Company Number: PHHY2010BR76893

PATIENT
  Sex: Male

DRUGS (3)
  1. DIOVAN [Suspect]
     Indication: HYPERTENSION
     Dosage: 320 MG, ONE TABLET
     Route: 048
     Dates: start: 20050101
  2. GLIMEPIRIDE [Concomitant]
     Dosage: 4 MG, TWO TABLETS DAILY
     Dates: start: 19900101
  3. METFORMIN [Concomitant]
     Dosage: 850 MG, TWO TABLET, DAILY
     Dates: start: 19900101

REACTIONS (2)
  - CORONARY ARTERY BYPASS [None]
  - VEIN DISORDER [None]
